FAERS Safety Report 24112894 (Version 1)
Quarter: 2024Q3

REPORT INFORMATION
  Report Type: Spontaneous
  Country: US (occurrence: US)
  Receive Date: 20240719
  Receipt Date: 20240719
  Transmission Date: 20241017
  Serious: No
  Sender: UPSHER-SMITH
  Company Number: US-UPSHER-SMITH LABORATORIES, LLC-2023USL00982

PATIENT
  Age: 66 Year
  Sex: Male
  Weight: 86.168 kg

DRUGS (2)
  1. TESTOSTERONE [Suspect]
     Active Substance: TESTOSTERONE
     Dosage: UNK (REPORTED AS ^ONCE^), 1X/DAY
     Route: 061
     Dates: start: 202309, end: 2023
  2. TESTOSTERONE [Suspect]
     Active Substance: TESTOSTERONE
     Dosage: UNK (REPORTED AS ^ONCE^), 1X/DAY
     Route: 061
     Dates: start: 202311

REACTIONS (1)
  - Discomfort [Not Recovered/Not Resolved]

NARRATIVE: CASE EVENT DATE: 20230901
